FAERS Safety Report 7319680-6 (Version None)
Quarter: 2011Q1

REPORT INFORMATION
  Report Type: 
  Country: None (occurrence: None)
  Receive Date: 20110228
  Receipt Date: 20100723
  Transmission Date: 20110831
  Serious: No
  Sender: FDA-Public Use
  Company Number: A0872109A

PATIENT
  Age: 23 Year
  Sex: Female

DRUGS (2)
  1. NO CONCURRENT MEDICATION [Concomitant]
  2. LAMICTAL [Suspect]
     Indication: DEPRESSION
     Dosage: 25MG PER DAY
     Route: 048
     Dates: start: 20100710, end: 20100718

REACTIONS (8)
  - LIP SWELLING [None]
  - PYREXIA [None]
  - COORDINATION ABNORMAL [None]
  - MEMORY IMPAIRMENT [None]
  - HEADACHE [None]
  - RASH MACULAR [None]
  - DIZZINESS [None]
  - NAUSEA [None]
